FAERS Safety Report 25220762 (Version 1)
Quarter: 2025Q2

REPORT INFORMATION
  Report Type: Spontaneous
  Country: US (occurrence: US)
  Receive Date: 20250421
  Receipt Date: 20250421
  Transmission Date: 20250717
  Serious: No
  Sender: IPSEN BIOPHARMACEUTICALS, INC.
  Company Number: US-IPSEN Group, Research and Development-2025-08332

PATIENT
  Sex: Female

DRUGS (1)
  1. SOMATULINE DEPOT [Suspect]
     Active Substance: LANREOTIDE ACETATE
     Indication: Vipoma
     Route: 065

REACTIONS (9)
  - Swelling of eyelid [Unknown]
  - Erythema of eyelid [Unknown]
  - Eyelid pain [Unknown]
  - Eyelids pruritus [Unknown]
  - Periorbital swelling [Unknown]
  - Erythema [Unknown]
  - Periorbital pain [Unknown]
  - Pruritus [Unknown]
  - Off label use [Unknown]
